FAERS Safety Report 9465230 (Version 2)
Quarter: 2013Q3

REPORT INFORMATION
  Report Type: Spontaneous
  Country: US (occurrence: US)
  Receive Date: 20130819
  Receipt Date: 20130819
  Transmission Date: 20140515
  Serious: Yes (Other)
  Sender: FDA-Public Use
  Company Number: US-SPECTRUM PHARMACEUTICALS, INC.-13-Z-US-00211

PATIENT
  Age: 71 Year
  Sex: Male
  Weight: 121.5 kg

DRUGS (3)
  1. ZEVALIN [Suspect]
     Indication: NON-HODGKIN^S LYMPHOMA
     Dosage: 3.2 MG/2 ML, SINGLE
     Route: 042
     Dates: start: 20130618, end: 20130618
  2. ZEVALIN [Suspect]
     Dosage: UNK UNK, SINGLE
     Route: 042
     Dates: start: 20130613, end: 20130613
  3. RITUXAN [Concomitant]
     Indication: NON-HODGKIN^S LYMPHOMA
     Dosage: 600 MG, UNK
     Route: 065
     Dates: start: 20130618

REACTIONS (4)
  - Disease progression [Not Recovered/Not Resolved]
  - Lymphadenopathy [Not Recovered/Not Resolved]
  - Thrombocytopenia [Recovered/Resolved]
  - Neutropenia [Recovered/Resolved]
